FAERS Safety Report 6978175-X (Version None)
Quarter: 2010Q3

REPORT INFORMATION
  Report Type: 
  Country: None (occurrence: None)
  Receive Date: 20100913
  Receipt Date: 20100830
  Transmission Date: 20110219
  Serious: Yes (Hospitalization)
  Sender: FDA-Public Use
  Company Number: PHHY2010SE59424

PATIENT
  Sex: Male

DRUGS (14)
  1. STALEVO 100 [Suspect]
     Indication: PARKINSON'S DISEASE
     Dosage: 125/31.25/200 MG X 4
     Route: 048
     Dates: start: 20071003
  2. STALEVO 100 [Suspect]
     Dosage: 100/25/200MG X 4
     Route: 048
  3. PRAMIPEXOLE DIHYDROCHLORIDE [Suspect]
     Dosage: 0.18 MG, UNK
     Route: 048
  4. WARAN [Suspect]
     Dosage: 2.5 MG, UNK
     Route: 048
  5. ENALAPRIL [Suspect]
     Dosage: 20 MG, UNK
     Route: 048
     Dates: end: 20100705
  6. AVODART [Concomitant]
  7. CRESTOR [Concomitant]
  8. NULYTELY [Concomitant]
     Dosage: UNK
  9. PLAVIX [Concomitant]
     Dosage: UNK
  10. NITROMEX [Concomitant]
     Dosage: UNK
  11. ACETAMINOPHEN [Concomitant]
     Dosage: UNK
  12. LAXOBERAL [Concomitant]
     Dosage: UNK
  13. CLOZAPINE [Concomitant]
     Dosage: UNK
  14. ZOPIKLON [Concomitant]
     Dosage: UNK

REACTIONS (9)
  - ANXIETY [None]
  - BLOOD CREATININE INCREASED [None]
  - BLOOD PRESSURE SYSTOLIC DECREASED [None]
  - CONFUSIONAL STATE [None]
  - HAEMOGLOBIN DECREASED [None]
  - HALLUCINATION [None]
  - INTERNATIONAL NORMALISED RATIO INCREASED [None]
  - PARKINSON'S DISEASE [None]
  - PROTHROMBIN LEVEL DECREASED [None]
